FAERS Safety Report 6121473-2 (Version None)
Quarter: 2009Q1

REPORT INFORMATION
  Report Type: 
  Country: None (occurrence: None)
  Receive Date: 20090313
  Receipt Date: 20090304
  Transmission Date: 20090719
  Serious: Yes (Hospitalization)
  Sender: FDA-Public Use
  Company Number: LTI2009A00064

PATIENT
  Age: 78 Year
  Sex: Female

DRUGS (6)
  1. ACTOS [Suspect]
     Indication: TYPE 2 DIABETES MELLITUS
     Dosage: 30 MG (30 MG, 1) ORAL
     Route: 048
     Dates: end: 20080903
  2. LYRICA [Suspect]
     Indication: DEPRESSION
     Dosage: UNK. (75 MG) ORAL
     Route: 048
     Dates: end: 20080903
  3. GLUCOPHAGE [Concomitant]
  4. IRBESARTAN [Concomitant]
  5. MORPHINE SULFATE [Suspect]
     Indication: BACK PAIN
     Dosage: 10 MG (10 MG, 1 IN 1 D) ORAL
     Route: 048
     Dates: end: 20080903
  6. MEDIATENSYL (URAPIDIL) [Concomitant]

REACTIONS (2)
  - SOMNOLENCE [None]
  - VOMITING [None]
